FAERS Safety Report 8145113-6 (Version None)
Quarter: 2012Q1

REPORT INFORMATION
  Report Type: 
  Country: None (occurrence: None)
  Receive Date: 20120217
  Receipt Date: 20120214
  Transmission Date: 20120608
  Serious: Yes (Death)
  Sender: FDA-Public Use
  Company Number: PHHY2012CA005563

PATIENT
  Sex: Male

DRUGS (1)
  1. SANDOSTATIN LAR [Suspect]
     Indication: NEOPLASM MALIGNANT
     Dosage: 20 MG, QMO
     Route: 030
     Dates: start: 20120116

REACTIONS (4)
  - CRYING [None]
  - DEATH [None]
  - PAIN [None]
  - INJECTION SITE PAIN [None]
